FAERS Safety Report 8616685-X (Version None)
Quarter: 2012Q3

REPORT INFORMATION
  Report Type: 
  Country: None (occurrence: None)
  Receive Date: 20120823
  Receipt Date: 20120820
  Transmission Date: 20120928
  Serious: Yes (Other)
  Sender: FDA-Public Use
  Company Number: US-PFIZER INC-2012204340

PATIENT
  Age: 42 Year
  Sex: Male
  Weight: 151 kg

DRUGS (4)
  1. ASPIRIN [Concomitant]
     Indication: CARDIAC DISORDER
     Dosage: UNK
  2. LYRICA [Suspect]
     Indication: NERVE INJURY
     Dosage: 75 MG, 2X/DAY
     Route: 048
     Dates: start: 20120501
  3. MEPHOBARBITAL [Concomitant]
     Indication: MUSCLE SPASMS
     Dosage: 75 MG, UNK
  4. OXYCODONE [Concomitant]
     Indication: PAIN
     Dosage: 325 MG, UNK

REACTIONS (5)
  - PERIPHERAL NERVE INJURY [None]
  - NERVE INJURY [None]
  - RESTLESS LEGS SYNDROME [None]
  - DISCOMFORT [None]
  - NEUROPATHY PERIPHERAL [None]
